FAERS Safety Report 8304428-9 (Version None)
Quarter: 2012Q2

REPORT INFORMATION
  Report Type: 
  Country: None (occurrence: None)
  Receive Date: 20120423
  Receipt Date: 20120213
  Transmission Date: 20120825
  Serious: No
  Sender: FDA-Public Use
  Company Number: US-COVIDIEN/TYCO HEALTHCARE/MALLINCKRODT-T201200630

PATIENT
  Sex: Male

DRUGS (3)
  1. ALBUTEROL [Concomitant]
     Indication: ASTHMA
     Dosage: 2-4 PUFFS PRN
     Route: 055
  2. METHYLIN [Suspect]
     Indication: ATTENTION DEFICIT/HYPERACTIVITY DISORDER
     Dosage: 10 MG, QD AND USUALLY AFTERNOON DOSE 3 DAYS PER WEEK FOR ACTIVITIES
     Dates: start: 20120119, end: 20120124
  3. METHYLIN [Suspect]
     Dosage: 15 MG, QAM
     Dates: start: 20120125, end: 20120126

REACTIONS (4)
  - HEADACHE [None]
  - DRUG INEFFECTIVE [None]
  - DISTURBANCE IN ATTENTION [None]
  - DIZZINESS [None]
